FAERS Safety Report 24029052 (Version 1)
Quarter: 2024Q2

REPORT INFORMATION
  Report Type: Spontaneous
  Country: US (occurrence: None)
  Receive Date: 20240627
  Receipt Date: 20240627
  Transmission Date: 20240716
  Serious: No
  Sender: FDA-Public Use
  Company Number: None

PATIENT
  Age: 57 Year
  Sex: Male
  Weight: 66.6 kg

DRUGS (8)
  1. KESIMPTA [Suspect]
     Active Substance: OFATUMUMAB
     Indication: Multiple sclerosis
     Dosage: OTHER FREQUENCY : ONCE MONTHLY;?
     Route: 058
     Dates: start: 20231016
  2. STELARA [Concomitant]
     Active Substance: USTEKINUMAB
  3. AMLODIPINE [Concomitant]
     Active Substance: AMLODIPINE BESYLATE
  4. BENAZEPRIL [Concomitant]
     Active Substance: BENAZEPRIL HYDROCHLORIDE
  5. VITAMIN D3 [Concomitant]
     Active Substance: CHOLECALCIFEROL
  6. VITAMINS [Concomitant]
     Active Substance: VITAMINS
  7. ACETAMINOPHEN [Concomitant]
     Active Substance: ACETAMINOPHEN
  8. CLEAR EYES DRY EYES PLUS OPHTHALMIC SOLUTION [Concomitant]

REACTIONS (3)
  - Headache [None]
  - Neck pain [None]
  - Adverse drug reaction [None]

NARRATIVE: CASE EVENT DATE: 20240627
